FAERS Safety Report 10291804 (Version 1)
Quarter: 2014Q3

REPORT INFORMATION
  Report Type: Spontaneous
  Country: DE (occurrence: DE)
  Receive Date: 20140710
  Receipt Date: 20140710
  Transmission Date: 20150326
  Serious: Yes (Other)
  Sender: FDA-Public Use
  Company Number: DE-AMGEN INC.-DEUSP2014050211

PATIENT
  Age: 27 Year
  Sex: Male

DRUGS (1)
  1. ARANESP [Suspect]
     Active Substance: DARBEPOETIN ALFA
     Indication: PRODUCT USED FOR UNKNOWN INDICATION
     Dosage: 120 MUG, QWK
     Route: 065

REACTIONS (4)
  - Haemolytic anaemia [Unknown]
  - Rectal haemorrhage [Unknown]
  - Hypersplenism [Unknown]
  - Liver disorder [Unknown]
